FAERS Safety Report 8842402 (Version 4)
Quarter: 2012Q4

REPORT INFORMATION
  Report Type: 
  Country: US (occurrence: US)
  Receive Date: 20121016
  Receipt Date: 20121024
  Transmission Date: 20130627
  Serious: Yes (Hospitalization)
  Sender: FDA-Public Use
  Company Number: US-GILEAD-2012-0062938

PATIENT
  Sex: Female

DRUGS (3)
  1. LETAIRIS [Suspect]
     Indication: PULMONARY ARTERIAL HYPERTENSION
     Dosage: 10 mg, QD
     Route: 048
     Dates: start: 20110103
  2. LETAIRIS [Suspect]
     Dosage: 10 mg, QD
     Dates: start: 20110104
  3. REMODULIN [Suspect]

REACTIONS (5)
  - Pulmonary arterial hypertension [Unknown]
  - Right ventricular failure [Unknown]
  - Headache [Unknown]
  - Nausea [Unknown]
  - Dyspnoea [Unknown]
